FAERS Safety Report 4888161-1 (Version None)
Quarter: 2006Q1

REPORT INFORMATION
  Report Type: 
  Country: None (occurrence: None)
  Receive Date: 20060119
  Receipt Date: 20060110
  Transmission Date: 20060701
  Serious: Yes (Disabling)
  Sender: FDA-Public Use
  Company Number: 2006001887

PATIENT
  Sex: Female

DRUGS (2)
  1. XANAX [Suspect]
     Indication: MENTAL DISORDER
  2. ALPRAZOLAM [Suspect]
     Indication: MENTAL DISORDER

REACTIONS (6)
  - DRUG INEFFECTIVE [None]
  - FEAR [None]
  - PANIC ATTACK [None]
  - PHARMACEUTICAL PRODUCT COMPLAINT [None]
  - PHOBIA [None]
  - THERAPEUTIC RESPONSE UNEXPECTED WITH DRUG SUBSTITUTION [None]
